FAERS Safety Report 6203149-6 (Version None)
Quarter: 2009Q2

REPORT INFORMATION
  Report Type: 
  Country: None (occurrence: None)
  Receive Date: 20090526
  Receipt Date: 20090526
  Transmission Date: 20091009
  Serious: Yes (Other)
  Sender: FDA-Public Use
  Company Number: None

PATIENT
  Age: 51 Year
  Sex: Male

DRUGS (2)
  1. CLONAZEPAM [Suspect]
     Indication: GENERALISED ANXIETY DISORDER
     Dosage: 0.5 MG ONCE BID PO
     Route: 048
     Dates: start: 20030101
  2. CLONAZEPAM [Suspect]
     Indication: GENERALISED ANXIETY DISORDER
     Dosage: 0.5 MG ONCE BID PO
     Route: 048
     Dates: start: 20050101

REACTIONS (3)
  - ANXIETY [None]
  - CONDITION AGGRAVATED [None]
  - PRODUCT SUBSTITUTION ISSUE [None]
